FAERS Safety Report 7363740-0 (Version None)
Quarter: 2011Q1

REPORT INFORMATION
  Report Type: 
  Country: None (occurrence: None)
  Receive Date: 20110321
  Receipt Date: 20110308
  Transmission Date: 20110831
  Serious: Yes (Other)
  Sender: FDA-Public Use
  Company Number: DE-JNJFOC-20100605787

PATIENT
  Age: 20 Year
  Sex: Female

DRUGS (4)
  1. METHOTREXATE [Concomitant]
     Indication: JUVENILE ARTHRITIS
  2. ETANERCEPT [Suspect]
     Indication: JUVENILE ARTHRITIS
  3. REMICADE [Suspect]
     Indication: JUVENILE ARTHRITIS
     Dosage: FOR 4 MONTHS
     Route: 042
  4. ADALIMUMAB [Suspect]
     Indication: JUVENILE ARTHRITIS

REACTIONS (1)
  - CERVICAL DYSPLASIA [None]
